FAERS Safety Report 9031995 (Version 1)
Quarter: 2013Q1

REPORT INFORMATION
  Report Type: Spontaneous
  Country: CA (occurrence: CA)
  Receive Date: 20130125
  Receipt Date: 20130125
  Transmission Date: 20140127
  Serious: Yes (Disabling)
  Sender: FDA-Public Use
  Company Number: CA-US-EMD SERONO, INC.-7188338

PATIENT
  Age: 61 Year
  Sex: Male

DRUGS (2)
  1. REBIF [Suspect]
     Indication: PRODUCT USED FOR UNKNOWN INDICATION
     Route: 065
  2. CORGARD [Concomitant]
     Indication: PRODUCT USED FOR UNKNOWN INDICATION

REACTIONS (7)
  - Amnesia [Unknown]
  - Dementia Alzheimer^s type [Unknown]
  - Hypoacusis [Unknown]
  - Localised infection [Unknown]
  - Pyrexia [Unknown]
  - Injection site reaction [Unknown]
  - Headache [Unknown]
